FAERS Safety Report 21440595 (Version 1)
Quarter: 2022Q4

REPORT INFORMATION
  Report Type: Spontaneous
  Country: FR (occurrence: FR)
  Receive Date: 20221011
  Receipt Date: 20221011
  Transmission Date: 20230113
  Serious: Yes (Hospitalization, Other)
  Sender: FDA-Public Use
  Company Number: None

PATIENT
  Age: 83 Year
  Sex: Female
  Weight: 49 kg

DRUGS (2)
  1. CLINDAMYCIN [Suspect]
     Active Substance: CLINDAMYCIN
     Indication: Osteomyelitis
     Dosage: 1500 MILLIGRAM, QD
     Route: 048
     Dates: start: 20220510, end: 20220719
  2. OXACILLIN SODIUM [Suspect]
     Active Substance: OXACILLIN SODIUM
     Indication: Osteomyelitis
     Dosage: 12 GRAM, QD, 1 G/5 ML
     Route: 042
     Dates: start: 20220503, end: 20220719

REACTIONS (1)
  - Hepatic cytolysis [Recovered/Resolved]

NARRATIVE: CASE EVENT DATE: 20220715
